FAERS Safety Report 9671831 (Version 1)
Quarter: 2013Q4

REPORT INFORMATION
  Report Type: Spontaneous
  Country: US (occurrence: US)
  Receive Date: 20131106
  Receipt Date: 20131106
  Transmission Date: 20140711
  Serious: No
  Sender: FDA-Public Use
  Company Number: US-BAYER-2013-134570

PATIENT
  Age: 90 Year
  Sex: Male
  Weight: 52 kg

DRUGS (2)
  1. ALEVE CAPLET [Suspect]
     Indication: ARTHRITIS
     Dosage: 1 DF, BID
     Route: 048
     Dates: start: 201310
  2. CENTRUM [Concomitant]

REACTIONS (2)
  - Insomnia [Recovered/Resolved]
  - Incorrect drug administration duration [None]
